FAERS Safety Report 10180522 (Version 1)
Quarter: 2014Q2

REPORT INFORMATION
  Report Type: Spontaneous
  Country: US (occurrence: US)
  Receive Date: 20140519
  Receipt Date: 20140519
  Transmission Date: 20141212
  Serious: No
  Sender: FDA-Public Use
  Company Number: US-MYLANLABS-2013S1009383

PATIENT
  Age: 46 Year
  Sex: Female
  Weight: 59.88 kg

DRUGS (2)
  1. BUPROPION HYDROCHLORIDE EXTENDED-RELEASE TABLETS USP, (SR) [Suspect]
     Indication: DEPRESSION
     Route: 048
     Dates: start: 2011, end: 201304
  2. VITAMINS [Concomitant]
     Route: 048

REACTIONS (1)
  - Urticaria [Recovered/Resolved]
